FAERS Safety Report 5018481-1 (Version None)
Quarter: 2006Q2

REPORT INFORMATION
  Report Type: 
  Country: None (occurrence: None)
  Receive Date: 20060605
  Receipt Date: 20060529
  Transmission Date: 20061013
  Serious: Yes (Hospitalization)
  Sender: FDA-Public Use
  Company Number: UG-BOEHRINGER INGELHEIM PHARMACEUTICALS, INC.-2006-DE-02702GD

PATIENT
  Age: 25 Year
  Sex: Female

DRUGS (4)
  1. NEVIRAPINE [Suspect]
     Indication: HIV INFECTION
     Dates: start: 20040527
  2. COMBIVIR [Concomitant]
     Indication: HIV INFECTION
     Dates: start: 20040527
  3. FLUCONAZOLE [Concomitant]
     Indication: VAGINAL CANDIDIASIS
  4. KETOCONAZOLE [Concomitant]
     Indication: VAGINAL CANDIDIASIS

REACTIONS (11)
  - CONJUNCTIVITIS INFECTIVE [None]
  - DYSKINESIA [None]
  - EYE INFECTION STAPHYLOCOCCAL [None]
  - HAEMATOCRIT DECREASED [None]
  - INSOMNIA [None]
  - MOUTH ULCERATION [None]
  - ODYNOPHAGIA [None]
  - PHARYNGITIS [None]
  - PLATELET COUNT DECREASED [None]
  - PYREXIA [None]
  - STEVENS-JOHNSON SYNDROME [None]
